FAERS Safety Report 9598545 (Version 1)
Quarter: 2013Q4

REPORT INFORMATION
  Report Type: Spontaneous
  Country: US (occurrence: US)
  Receive Date: 20131004
  Receipt Date: 20131004
  Transmission Date: 20140711
  Serious: No
  Sender: FDA-Public Use
  Company Number: US-AMGEN-USASP2013024535

PATIENT
  Age: 47 Year
  Sex: Female
  Weight: 106.12 kg

DRUGS (9)
  1. ENBREL [Suspect]
     Indication: PRODUCT USED FOR UNKNOWN INDICATION
     Dosage: 50 MG, QWK
  2. VICODIN [Concomitant]
     Dosage: UNK, 5-500 MG
  3. PRAVASTATIN [Concomitant]
     Dosage: 10 MG, UNK
  4. METFORMIN [Concomitant]
     Dosage: 500 MG, UNK
  5. LISINOPRIL [Concomitant]
     Dosage: 5 MG, UNK
  6. VITAMIN B12                        /00056201/ [Concomitant]
     Dosage: 100 MUG, UNK
  7. VITAMIN D                          /00107901/ [Concomitant]
     Dosage: 400 UNIT, UNK
  8. FOLIC ACID [Concomitant]
     Dosage: UNK
  9. MAG-OX [Concomitant]
     Dosage: 400 MG, UNK

REACTIONS (1)
  - Drug ineffective [Recovered/Resolved]
